FAERS Safety Report 11500261 (Version 1)
Quarter: 2015Q3

REPORT INFORMATION
  Report Type: Spontaneous
  Country: US (occurrence: None)
  Receive Date: 20150911
  Receipt Date: 20150911
  Transmission Date: 20151125
  Serious: Yes (Hospitalization)
  Sender: FDA-Public Use
  Company Number: None

PATIENT
  Age: 64 Year
  Sex: Female
  Weight: 81.65 kg

DRUGS (7)
  1. ZOSYN [Concomitant]
     Active Substance: PIPERACILLIN SODIUM\TAZOBACTAM SODIUM
  2. RIFAXIMIN [Concomitant]
     Active Substance: RIFAXIMIN
  3. INSULIN [Concomitant]
     Active Substance: INSULIN NOS
  4. VANCOMYCIN [Concomitant]
     Active Substance: VANCOMYCIN
  5. HARVONI [Suspect]
     Active Substance: LEDIPASVIR\SOFOSBUVIR
     Indication: HEPATITIS C
     Dosage: 11/24/2014-02/12/2014??90/400MG
     Route: 048
     Dates: start: 20141124, end: 20141202
  6. HEPARIN (SUB Q) [Concomitant]
  7. LACTULOSE. [Concomitant]
     Active Substance: LACTULOSE

REACTIONS (5)
  - Metastases to bone [None]
  - Unevaluable event [None]
  - Pathological fracture [None]
  - Encephalopathy [None]
  - Breast cancer metastatic [None]

NARRATIVE: CASE EVENT DATE: 20150210
